FAERS Safety Report 24617016 (Version 1)
Quarter: 2024Q4

REPORT INFORMATION
  Report Type: Report from Study
  Country: US (occurrence: US)
  Receive Date: 20241114
  Receipt Date: 20241114
  Transmission Date: 20250114
  Serious: Yes (Other)
  Sender: ALEXION PHARMACEUTICALS
  Company Number: US-AstraZeneca-CH-00742351A

PATIENT

DRUGS (12)
  1. BUDESONIDE\FORMOTEROL\GLYCOPYRRONIUM [Suspect]
     Active Substance: BUDESONIDE\FORMOTEROL\GLYCOPYRRONIUM
     Indication: Product used for unknown indication
     Dosage: UNK
     Route: 065
  2. BUDESONIDE\FORMOTEROL\GLYCOPYRRONIUM [Suspect]
     Active Substance: BUDESONIDE\FORMOTEROL\GLYCOPYRRONIUM
     Dosage: UNK
  3. BUDESONIDE\FORMOTEROL\GLYCOPYRRONIUM [Suspect]
     Active Substance: BUDESONIDE\FORMOTEROL\GLYCOPYRRONIUM
     Dosage: UNK
     Route: 065
  4. BUDESONIDE\FORMOTEROL\GLYCOPYRRONIUM [Suspect]
     Active Substance: BUDESONIDE\FORMOTEROL\GLYCOPYRRONIUM
     Dosage: UNK
  5. DEVICE [Suspect]
     Active Substance: DEVICE
     Route: 065
  6. DEVICE [Suspect]
     Active Substance: DEVICE
  7. DEVICE [Suspect]
     Active Substance: DEVICE
     Route: 065
  8. DEVICE [Suspect]
     Active Substance: DEVICE
  9. DEVICE [Suspect]
     Active Substance: DEVICE
     Route: 065
  10. DEVICE [Suspect]
     Active Substance: DEVICE
  11. DEVICE [Suspect]
     Active Substance: DEVICE
     Route: 065
  12. DEVICE [Suspect]
     Active Substance: DEVICE

REACTIONS (1)
  - Lung neoplasm malignant [Unknown]
